FAERS Safety Report 24836244 (Version 3)
Quarter: 2025Q1

REPORT INFORMATION
  Report Type: Report from Study
  Country: US (occurrence: US)
  Receive Date: 20250113
  Receipt Date: 20250205
  Transmission Date: 20250409
  Serious: Yes (Hospitalization, Other)
  Sender: ROCHE
  Company Number: US-ROCHE-10000173625

PATIENT
  Age: 55 Year
  Sex: Female

DRUGS (2)
  1. ENSPRYNG [Suspect]
     Active Substance: SATRALIZUMAB-MWGE
     Indication: Neuromyelitis optica spectrum disorder
     Route: 065
  2. RITUXAN [Suspect]
     Active Substance: RITUXIMAB
     Indication: Immunology test
     Route: 065

REACTIONS (13)
  - Pneumonia [Recovered/Resolved]
  - Blindness [Unknown]
  - Vaginal infection [Unknown]
  - Urinary tract infection [Unknown]
  - Gait inability [Unknown]
  - Glucose tolerance impaired [Unknown]
  - Fatigue [Unknown]
  - Depression [Unknown]
  - Atrophic vulvovaginitis [Unknown]
  - Obesity [Unknown]
  - Hypertension [Unknown]
  - Off label use [Unknown]
  - Blood oestrogen decreased [Unknown]

NARRATIVE: CASE EVENT DATE: 20241129
